FAERS Safety Report 8860745 (Version 2)
Quarter: 2013Q3

REPORT INFORMATION
  Report Type: Spontaneous
  Country: US (occurrence: US)
  Receive Date: 20121025
  Receipt Date: 20130704
  Transmission Date: 20140515
  Serious: Yes (Life-Threatening, Hospitalization)
  Sender: FDA-Public Use
  Company Number: CHPA2012US022277

PATIENT
  Age: 65 Year
  Sex: Male

DRUGS (2)
  1. BUCKLEY^S CHEST CONGESTION [Suspect]
     Indication: PNEUMONIA
     Dosage: 1 TSP MAYBE 2 TSP A DAY
     Route: 048
     Dates: start: 2010
  2. PREDNISONE [Concomitant]
     Indication: LUNG DISORDER
     Dosage: 2.5 TO 5 MG DAILY

REACTIONS (5)
  - Apparent death [Recovered/Resolved]
  - Pneumonia [Unknown]
  - Cough [Not Recovered/Not Resolved]
  - Off label use [Unknown]
  - Therapeutic response unexpected [Unknown]
